FAERS Safety Report 5143428-7 (Version None)
Quarter: 2006Q4

REPORT INFORMATION
  Report Type: 
  Country: None (occurrence: None)
  Receive Date: 20061101
  Receipt Date: 20061101
  Transmission Date: 20070319
  Serious: Yes (Life-Threatening)
  Sender: FDA-Public Use
  Company Number: None

PATIENT
  Age: 85 Year
  Sex: Male
  Weight: 73 kg

DRUGS (1)
  1. ZOCOR [Suspect]
     Indication: HYPERLIPIDAEMIA
     Dosage: 80 MG DAILY PO
     Route: 048

REACTIONS (6)
  - CARDIAC ENZYMES INCREASED [None]
  - CEREBROVASCULAR ACCIDENT [None]
  - CONFUSIONAL STATE [None]
  - ELECTROCARDIOGRAM QT PROLONGED [None]
  - MYOCARDIAL ISCHAEMIA [None]
  - RHABDOMYOLYSIS [None]
